FAERS Safety Report 6594959-4 (Version None)
Quarter: 2010Q1

REPORT INFORMATION
  Report Type: 
  Country: None (occurrence: None)
  Receive Date: 20100222
  Receipt Date: 20100208
  Transmission Date: 20100710
  Serious: Yes (Other)
  Sender: FDA-Public Use
  Company Number: GB-PFIZER INC-2006089996

PATIENT
  Age: 55 Year
  Sex: Female
  Weight: 65 kg

DRUGS (13)
  1. VORICONAZOLE [Suspect]
     Indication: CANDIDIASIS
     Dosage: 200 MG, 2X/DAY
     Route: 048
     Dates: start: 20041201, end: 20050601
  2. METHOTREXATE [Concomitant]
     Route: 048
  3. PREDNISOLONE [Concomitant]
     Route: 048
  4. LIPITOR [Concomitant]
     Route: 048
  5. FUROSEMIDE [Concomitant]
     Route: 048
  6. CALCICHEW [Concomitant]
     Route: 048
  7. AMLODIPINE [Concomitant]
     Route: 048
  8. RISEDRONATE SODIUM [Concomitant]
     Route: 048
  9. BETALOC [Concomitant]
     Route: 048
  10. LAMICTAL CD [Concomitant]
     Route: 048
  11. SLOW-K [Concomitant]
     Route: 048
  12. ZINC [Concomitant]
     Route: 048
  13. FLUCONAZOLE [Concomitant]

REACTIONS (1)
  - PSEUDOPORPHYRIA [None]
